FAERS Safety Report 25203046 (Version 1)
Quarter: 2025Q2

REPORT INFORMATION
  Report Type: Spontaneous
  Country: JP (occurrence: JP)
  Receive Date: 20250416
  Receipt Date: 20250416
  Transmission Date: 20250717
  Serious: Yes (Other)
  Sender: RANBAXY
  Company Number: JP-SUN PHARMACEUTICAL INDUSTRIES LTD-2025RR-502649

PATIENT
  Age: 74 Year
  Sex: Female

DRUGS (1)
  1. ASPIRIN [Suspect]
     Active Substance: ASPIRIN
     Indication: Myeloproliferative neoplasm
     Dosage: 100 MILLIGRAM, DAILY
     Route: 065

REACTIONS (1)
  - Gastrointestinal ulcer [Recovered/Resolved]
